FAERS Safety Report 6986380-1 (Version None)
Quarter: 2010Q3

REPORT INFORMATION
  Report Type: 
  Country: None (occurrence: None)
  Receive Date: 20100915
  Receipt Date: 20090624
  Transmission Date: 20110219
  Serious: No
  Sender: FDA-Public Use
  Company Number: US-WYE-H09918709

PATIENT
  Sex: Female
  Weight: 68.1 kg

DRUGS (2)
  1. PRISTIQ [Suspect]
     Indication: GENERALISED ANXIETY DISORDER
     Route: 048
     Dates: start: 20090623
  2. PLAQUENIL [Concomitant]

REACTIONS (8)
  - ABDOMINAL PAIN LOWER [None]
  - DIARRHOEA [None]
  - DIZZINESS [None]
  - FEELING JITTERY [None]
  - HEADACHE [None]
  - HYPERHIDROSIS [None]
  - NAUSEA [None]
  - PANIC ATTACK [None]
